FAERS Safety Report 13567340 (Version 1)
Quarter: 2017Q2

REPORT INFORMATION
  Report Type: Spontaneous
  Country: US (occurrence: US)
  Receive Date: 20170522
  Receipt Date: 20170522
  Transmission Date: 20170830
  Serious: No
  Sender: FDA-Public Use
  Company Number: US-MYLANLABS-2017M1015781

PATIENT
  Sex: Female
  Weight: 101.13 kg

DRUGS (6)
  1. MECLIZINE [Concomitant]
     Active Substance: MECLIZINE HYDROCHLORIDE
     Indication: PRODUCT USED FOR UNKNOWN INDICATION
  2. MONTELUKAST [Concomitant]
     Active Substance: MONTELUKAST SODIUM
  3. TRAMADOL. [Concomitant]
     Active Substance: TRAMADOL
     Indication: PAIN
     Dosage: 50 MG, PRN
     Route: 048
     Dates: start: 201510
  4. AMITRIPTYLINE HYDROCHLORIDE TABLETS, USP [Suspect]
     Active Substance: AMITRIPTYLINE HYDROCHLORIDE
     Indication: INSOMNIA
  5. AMITRIPTYLINE HYDROCHLORIDE TABLETS, USP [Suspect]
     Active Substance: AMITRIPTYLINE HYDROCHLORIDE
     Indication: PAIN
     Dosage: 75 MG, PM (BEDTIME)
     Route: 048
     Dates: start: 201510
  6. PREDNISONE. [Concomitant]
     Active Substance: PREDNISONE
     Indication: PRODUCT USED FOR UNKNOWN INDICATION

REACTIONS (2)
  - Vision blurred [Not Recovered/Not Resolved]
  - Hyperchlorhydria [Not Recovered/Not Resolved]
